FAERS Safety Report 5170579-3 (Version None)
Quarter: 2006Q4

REPORT INFORMATION
  Report Type: 
  Country: None (occurrence: None)
  Receive Date: 20061205
  Receipt Date: 20061124
  Transmission Date: 20070319
  Serious: Yes (Death, Other)
  Sender: FDA-Public Use
  Company Number: 2006105974

PATIENT
  Age: 38 Year
  Sex: Male
  Weight: 85.5 kg

DRUGS (6)
  1. ZELDOX (CAPSULES) (ZIPRASIDONE) [Suspect]
     Indication: SCHIZOPHRENIA
     Dosage: 160 MG (80 MG, 2 IN 1 D), ORAL
     Route: 048
     Dates: start: 20041215, end: 20060817
  2. VALIUM [Concomitant]
  3. EPILIM (VALPROATE SODIUM) [Concomitant]
  4. ARTANE [Concomitant]
  5. CLOZAPINE [Concomitant]
  6. HALDOL SOLUTAB [Concomitant]

REACTIONS (4)
  - FALL [None]
  - HAEMATEMESIS [None]
  - RESUSCITATION [None]
  - THERAPY NON-RESPONDER [None]
